FAERS Safety Report 24832127 (Version 1)
Quarter: 2025Q1

REPORT INFORMATION
  Report Type: Spontaneous
  Country: US (occurrence: None)
  Receive Date: 20250110
  Receipt Date: 20250110
  Transmission Date: 20250408
  Serious: No
  Sender: FDA-CTU
  Company Number: None

PATIENT
  Age: 84 Year
  Sex: Female
  Weight: 75.3 kg

DRUGS (10)
  1. OZEMPIC [Suspect]
     Active Substance: SEMAGLUTIDE
     Indication: Diabetes mellitus
     Dosage: FREQUENCY : WEEKLY;?
     Route: 058
     Dates: start: 20240918, end: 20241201
  2. ATORVASTATIN [Concomitant]
     Active Substance: ATORVASTATIN
  3. SYNTHROID [Concomitant]
     Active Substance: LEVOTHYROXINE SODIUM
  4. Pranatine [Concomitant]
  5. PANTOPRAZOLE [Concomitant]
     Active Substance: PANTOPRAZOLE
  6. LOSARTAN [Concomitant]
     Active Substance: LOSARTAN
  7. Hyprochlorothiazide [Concomitant]
  8. VITA D3 [Concomitant]
  9. TYLENOL [Concomitant]
     Active Substance: ACETAMINOPHEN
  10. Sennas - S [Concomitant]

REACTIONS (6)
  - Nocturnal fear [None]
  - Tremor [None]
  - Dyspnoea [None]
  - Anxiety [None]
  - Depression [None]
  - Crying [None]

NARRATIVE: CASE EVENT DATE: 20241108
